FAERS Safety Report 16514479 (Version 1)
Quarter: 2019Q3

REPORT INFORMATION
  Report Type: Spontaneous
  Country: US (occurrence: US)
  Receive Date: 20190702
  Receipt Date: 20190702
  Transmission Date: 20191004
  Serious: No
  Sender: FDA-Public Use
  Company Number: US-TEVA-2019-US-1068000

PATIENT
  Sex: Female

DRUGS (2)
  1. MUPIROCIN OINTMENT [Suspect]
     Active Substance: MUPIROCIN
     Dosage: FOUR MONTHS AGO
     Route: 045
     Dates: start: 201902
  2. LEVOTHYROXINE 0.75MG [Concomitant]
     Route: 065

REACTIONS (4)
  - Product physical consistency issue [Unknown]
  - Product prescribing error [Unknown]
  - Incorrect route of product administration [Unknown]
  - Drug ineffective [Unknown]

NARRATIVE: CASE EVENT DATE: 201902
